FAERS Safety Report 4350687-7 (Version None)
Quarter: 2004Q2

REPORT INFORMATION
  Report Type: 
  Country: None (occurrence: None)
  Receive Date: 20040429
  Receipt Date: 20040429
  Transmission Date: 20050107
  Serious: Yes (Congenital Anomaly, Other)
  Sender: FDA-Public Use
  Company Number: None

PATIENT
  Age: 28 Year
  Sex: Female
  Weight: 90.7194 kg

DRUGS (2)
  1. EFFEXOR XR [Suspect]
     Dosage: DAILY
  2. EFFEXOR XR [Suspect]
     Indication: SEASONAL AFFECTIVE DISORDER
     Dosage: DAILY TO WEA

REACTIONS (4)
  - DIZZINESS [None]
  - FEELING ABNORMAL [None]
  - NERVOUS SYSTEM DISORDER [None]
  - TREMOR [None]
